FAERS Safety Report 9238680 (Version 1)
Quarter: 2013Q1

REPORT INFORMATION
  Report Type: Spontaneous
  Country: US (occurrence: None)
  Receive Date: 20121106
  Receipt Date: 20121106
  Transmission Date: 20140127
  Serious: No
  Sender: FDA-Public Use
  Company Number: 1000038265

PATIENT
  Age: 98 Year
  Sex: Female

DRUGS (3)
  1. DALIRESP [Suspect]
     Indication: CHRONIC OBSTRUCTIVE PULMONARY DISEASE
     Dosage: MCG, 1 IN 1
     Dates: start: 20120830
  2. ATROVENT [Concomitant]
  3. ASMANEX [Concomitant]

REACTIONS (1)
  - Diarrhoea [None]
